FAERS Safety Report 4405016-7 (Version None)
Quarter: 2004Q3

REPORT INFORMATION
  Report Type: 
  Country: None (occurrence: None)
  Receive Date: 20040716
  Receipt Date: 20040701
  Transmission Date: 20050211
  Serious: Yes (Hospitalization)
  Sender: FDA-Public Use
  Company Number: 2004SP000152

PATIENT
  Age: 15 Year
  Sex: Female
  Weight: 34.4734 kg

DRUGS (1)
  1. XOPENEX [Suspect]
     Indication: PROPHYLAXIS
     Dosage: 1.25 MG/3ML; EVERY 4  HOURS;INHALATION
     Route: 055
     Dates: start: 20040101

REACTIONS (2)
  - DRY SKIN [None]
  - TRACHEOSTOMY MALFUNCTION [None]
